FAERS Safety Report 7902274-9 (Version None)
Quarter: 2011Q4

REPORT INFORMATION
  Report Type: 
  Country: None (occurrence: None)
  Receive Date: 20111108
  Receipt Date: 20111026
  Transmission Date: 20120403
  Serious: Yes (Other)
  Sender: FDA-Public Use
  Company Number: IN-MYLANLABS-2011S1022438

PATIENT
  Age: 85 Year
  Sex: Male

DRUGS (1)
  1. IBUPROFEN [Suspect]

REACTIONS (1)
  - DUODENAL OBSTRUCTION [None]
